FAERS Safety Report 9895396 (Version 1)
Quarter: 2014Q1

REPORT INFORMATION
  Report Type: Spontaneous
  Country: US (occurrence: US)
  Receive Date: 20140213
  Receipt Date: 20140213
  Transmission Date: 20141002
  Serious: Yes (Other)
  Sender: FDA-Public Use
  Company Number: US-BRISTOL-MYERS SQUIBB COMPANY-17354622

PATIENT
  Age: 72 Year
  Sex: Female
  Weight: 45.35 kg

DRUGS (1)
  1. ORENCIA [Suspect]
     Indication: RHEUMATOID ARTHRITIS
     Dosage: LAST INFUSION WAS ON 26JAN2013
     Route: 042

REACTIONS (2)
  - Abdominal pain [Unknown]
  - Diarrhoea [Unknown]
